FAERS Safety Report 16255245 (Version 1)
Quarter: 2019Q2

REPORT INFORMATION
  Report Type: Spontaneous
  Country: US (occurrence: US)
  Receive Date: 20190430
  Receipt Date: 20190430
  Transmission Date: 20190711
  Serious: No
  Sender: FDA-Public Use
  Company Number: US-MYLANLABS-2019M1034843

PATIENT
  Age: 53 Year
  Sex: Male
  Weight: 73 kg

DRUGS (1)
  1. HYOSCYAMINE MYLAN [Suspect]
     Active Substance: HYOSCYAMINE
     Indication: ABDOMINAL RIGIDITY
     Dosage: UNK
     Route: 048
     Dates: start: 20190331

REACTIONS (1)
  - Dysarthria [Not Recovered/Not Resolved]

NARRATIVE: CASE EVENT DATE: 20190401
